FAERS Safety Report 5212742-9 (Version None)
Quarter: 2006Q4

REPORT INFORMATION
  Report Type: 
  Country: None (occurrence: None)
  Receive Date: 20061115
  Receipt Date: 20060824
  Transmission Date: 20070319
  Serious: No
  Sender: FDA-Public Use
  Company Number: 200615444BWH

PATIENT
  Age: 73 Year
  Sex: Female

DRUGS (4)
  1. NEXAVAR [Suspect]
     Indication: METASTATIC RENAL CELL CARCINOMA
     Dosage: 400 MG, BID, ORAL
     Route: 048
     Dates: start: 20060810
  2. VITAMINS [Concomitant]
  3. TYLENOL [Concomitant]
  4. MELATONIN [Concomitant]

REACTIONS (2)
  - PAIN OF SKIN [None]
  - PRURITUS [None]
